FAERS Safety Report 8759636 (Version 1)
Quarter: 2012Q4

REPORT INFORMATION
  Report Type: 
  Country: US (occurrence: US)
  Receive Date: 20120829
  Receipt Date: 20120829
  Transmission Date: 20130627
  Serious: Yes (Other)
  Sender: FDA-Public Use
  Company Number: US-JNJFOC-20120811687

PATIENT
  Age: 45 Year
  Sex: Female

DRUGS (1)
  1. LISTERINE ESSENTIAL CARE TARTAR GEL [Suspect]
     Indication: DENTAL DISORDER PROPHYLAXIS
     Dosage: thin strip on the length of brush
     Route: 048
     Dates: start: 20120801, end: 20120817

REACTIONS (1)
  - Gastroenteritis viral [Not Recovered/Not Resolved]
